FAERS Safety Report 11075244 (Version 1)
Quarter: 2015Q2

REPORT INFORMATION
  Report Type: Spontaneous
  Country: JP (occurrence: JP)
  Receive Date: 20150429
  Receipt Date: 20150429
  Transmission Date: 20150821
  Serious: Yes (Hospitalization, Other)
  Sender: FDA-Public Use
  Company Number: US-ASTRAZENECA-2015SE39422

PATIENT
  Age: 80 Year
  Sex: Male

DRUGS (4)
  1. AMLODIPINE [Concomitant]
     Active Substance: AMLODIPINE BESYLATE
  2. AVOLVE [Concomitant]
     Active Substance: DUTASTERIDE
  3. FLIVAS [Concomitant]
     Active Substance: NAFTOPIDIL
  4. CANDESARTAN [Suspect]
     Active Substance: CANDESARTAN
     Indication: HYPERTENSION
     Route: 048
     Dates: start: 20141203

REACTIONS (2)
  - Drug eruption [Recovered/Resolved]
  - Scrotal oedema [Recovered/Resolved]

NARRATIVE: CASE EVENT DATE: 20150330
